FAERS Safety Report 17747279 (Version 2)
Quarter: 2020Q2

REPORT INFORMATION
  Report Type: Spontaneous
  Country: US (occurrence: US)
  Receive Date: 20200505
  Receipt Date: 20200521
  Transmission Date: 20200714
  Serious: Yes (Other)
  Sender: FDA-Public Use
  Company Number: US-AMGEN-USASP2020069172

PATIENT
  Age: 75 Year
  Sex: Female

DRUGS (10)
  1. PROLIA [Suspect]
     Active Substance: DENOSUMAB
     Indication: OSTEOPOROSIS POSTMENOPAUSAL
     Dosage: 60 MILLIGRAM, Q6MO
     Route: 065
  2. KEPPRA [Concomitant]
     Active Substance: LEVETIRACETAM
     Dosage: 700 MILLIGRAM
  3. VITAMIN B3 [Concomitant]
     Active Substance: NIACIN
     Dosage: 2000 UNIT
  4. GABAPENTIN. [Concomitant]
     Active Substance: GABAPENTIN
     Dosage: 300 MILLIGRAM, 2 AT NIGHT AND 1 IN THE MORNING
  5. VITAMINE C [Concomitant]
     Active Substance: ASCORBIC ACID
     Dosage: 500 MILLIGRAM, QD
  6. AMBIEN [Suspect]
     Active Substance: ZOLPIDEM TARTRATE
     Indication: INSOMNIA
     Dosage: UNK
     Route: 065
  7. VITAMIN B COMPLEX [Concomitant]
     Active Substance: CYANOCOBALAMIN\DEXPANTHENOL\NIACINAMIDE\PYRIDOXINE HYDROCHLORIDE\RIBOFLAVIN 5^-PHOSPHATE SODIUM\THIAMINE HYDROCHLORIDE\VITAMIN B COMPLEX
     Dosage: UNK
  8. VERAPAMIL [Concomitant]
     Active Substance: VERAPAMIL HYDROCHLORIDE
     Dosage: 120 MILLIGRAM
  9. ATORVASTATIN [Concomitant]
     Active Substance: ATORVASTATIN
     Dosage: 120 MILLIGRAM, QD
  10. ISOSORBIDE. [Concomitant]
     Active Substance: ISOSORBIDE
     Indication: CARDIAC DISORDER
     Dosage: HALF OF A 30 MG TABLET

REACTIONS (11)
  - Osteoarthritis [Unknown]
  - Pain [Unknown]
  - Dysphonia [Recovered/Resolved]
  - Insomnia [Unknown]
  - Blindness unilateral [Unknown]
  - Incontinence [Unknown]
  - Mobility decreased [Unknown]
  - Bone pain [Not Recovered/Not Resolved]
  - Peripheral coldness [Recovering/Resolving]
  - Nightmare [Unknown]
  - Ulcer [Unknown]

NARRATIVE: CASE EVENT DATE: 2019
